FAERS Safety Report 9714793 (Version 1)
Quarter: 2013Q4

REPORT INFORMATION
  Report Type: Spontaneous
  Country: GB (occurrence: None)
  Receive Date: 20131125
  Receipt Date: 20131125
  Transmission Date: 20140711
  Serious: Yes (Other)
  Sender: FDA-Public Use
  Company Number: 2013P1021115

PATIENT
  Sex: Female

DRUGS (1)
  1. FENTANYL [Suspect]

REACTIONS (2)
  - Abortion induced [None]
  - Maternal drugs affecting foetus [None]
